FAERS Safety Report 21017024 (Version 1)
Quarter: 2022Q2

REPORT INFORMATION
  Report Type: Report from Study
  Country: US (occurrence: US)
  Receive Date: 20220628
  Receipt Date: 20220628
  Transmission Date: 20220721
  Serious: Yes (Other)
  Sender: FDA-Public Use
  Company Number: US-TAKEDA-US201927488

PATIENT
  Sex: Male
  Weight: 76.644 kg

DRUGS (2)
  1. HUMAN IMMUNOGLOBULIN G [Suspect]
     Active Substance: HUMAN IMMUNOGLOBULIN G
     Indication: Hypogammaglobulinaemia
     Dosage: 15 GRAM, MONTHLY
     Route: 042
  2. IBUPROFEN [Concomitant]
     Active Substance: IBUPROFEN
     Indication: Product used for unknown indication

REACTIONS (6)
  - Myocardial infarction [Unknown]
  - Diabetes mellitus [Unknown]
  - Illness [Unknown]
  - Fatigue [Unknown]
  - Malaise [Unknown]
  - Inappropriate schedule of product administration [Unknown]
